FAERS Safety Report 15560886 (Version 1)
Quarter: 2018Q4

REPORT INFORMATION
  Report Type: Spontaneous
  Country: US (occurrence: US)
  Receive Date: 20181023
  Receipt Date: 20181023
  Transmission Date: 20190205
  Serious: Yes (Hospitalization)
  Sender: FDA-Public Use
  Company Number: None

PATIENT
  Age: 54 Year
  Sex: Male

DRUGS (9)
  1. LISINOPRIL. [Concomitant]
     Active Substance: LISINOPRIL
  2. SIMPONI [Suspect]
     Active Substance: GOLIMUMAB
     Route: 030
  3. CARVEDILOL. [Concomitant]
     Active Substance: CARVEDILOL
  4. SIMPONI [Suspect]
     Active Substance: GOLIMUMAB
     Indication: CROHN^S DISEASE
     Route: 058
     Dates: start: 20170801
  5. ASPIRIN 81MG [Concomitant]
     Active Substance: ASPIRIN
  6. WARFARIN [Concomitant]
     Active Substance: WARFARIN
  7. DULOXETINE. [Concomitant]
     Active Substance: DULOXETINE
  8. RANITIDINE. [Concomitant]
     Active Substance: RANITIDINE
  9. ATORVASTATIN [Concomitant]
     Active Substance: ATORVASTATIN

REACTIONS (2)
  - Cardiac operation [None]
  - Heart valve replacement [None]

NARRATIVE: CASE EVENT DATE: 2018
